FAERS Safety Report 21163756 (Version 1)
Quarter: 2022Q3

REPORT INFORMATION
  Report Type: Spontaneous
  Country: US (occurrence: US)
  Receive Date: 20220803
  Receipt Date: 20220803
  Transmission Date: 20221027
  Serious: Yes (Other)
  Sender: FDA-Public Use
  Company Number: US-SUN PHARMACEUTICAL INDUSTRIES LTD-2022R1-346728

PATIENT
  Age: 83 Year
  Sex: Male

DRUGS (3)
  1. AZITHROMYCIN [Suspect]
     Active Substance: AZITHROMYCIN
     Indication: Mycobacterium avium complex infection
     Dosage: UNK
     Route: 065
  2. ETHAMBUTOL [Suspect]
     Active Substance: ETHAMBUTOL HYDROCHLORIDE
     Indication: Mycobacterium avium complex infection
     Dosage: UNK
     Route: 065
  3. RIFABUTIN [Suspect]
     Active Substance: RIFABUTIN
     Indication: Mycobacterium avium complex infection
     Dosage: UNK
     Route: 065

REACTIONS (1)
  - Condition aggravated [Unknown]
